FAERS Safety Report 8600633-2 (Version None)
Quarter: 2012Q3

REPORT INFORMATION
  Report Type: 
  Country: None (occurrence: None)
  Receive Date: 20120817
  Receipt Date: 20120807
  Transmission Date: 20120928
  Serious: Yes (Hospitalization, Other)
  Sender: FDA-Public Use
  Company Number: JP-JNJFOC-20120609048

PATIENT
  Sex: Male
  Weight: 57 kg

DRUGS (8)
  1. REMICADE [Suspect]
     Indication: CROHN'S DISEASE
     Route: 042
     Dates: start: 20120531
  2. IMURAN [Suspect]
     Indication: PRODUCT USED FOR UNKNOWN INDICATION
     Route: 048
     Dates: start: 20110601
  3. REMICADE [Suspect]
     Route: 042
     Dates: start: 20120411
  4. ELENTAL [Concomitant]
     Route: 048
  5. PENTASA [Concomitant]
     Indication: CROHN'S DISEASE
     Dosage: TOTAL 3000 MG PER DAY
     Route: 048
     Dates: start: 20110501
  6. PREDNISOLONE [Concomitant]
     Route: 065
  7. REMICADE [Suspect]
     Route: 042
     Dates: start: 20120424
  8. EPINASTINE HYDROCHLORIDE [Concomitant]
     Route: 048

REACTIONS (4)
  - INTESTINAL PERFORATION [None]
  - TUBERCULOSIS GASTROINTESTINAL [None]
  - COMPUTERISED TOMOGRAM ABNORMAL [None]
  - PLEURAL EFFUSION [None]
